FAERS Safety Report 10713827 (Version 1)
Quarter: 2015Q1

REPORT INFORMATION
  Report Type: Spontaneous
  Country: US (occurrence: US)
  Receive Date: 20150115
  Receipt Date: 20150115
  Transmission Date: 20150721
  Serious: No
  Sender: FDA-Public Use
  Company Number: US-PFIZER INC-2015013859

PATIENT
  Age: 64 Year
  Sex: Female

DRUGS (3)
  1. CYMBALTA [Concomitant]
     Active Substance: DULOXETINE HYDROCHLORIDE
     Indication: PAIN
     Dosage: UNK
  2. GABAPENTIN. [Suspect]
     Active Substance: GABAPENTIN
     Dosage: UNK
  3. HORIZANT [Suspect]
     Active Substance: GABAPENTIN ENACARBIL
     Indication: NEURALGIA
     Dosage: 600 MG, 2X/DAY
     Route: 048

REACTIONS (1)
  - Drug ineffective [Unknown]
